FAERS Safety Report 5453189-X (Version None)
Quarter: 2007Q3

REPORT INFORMATION
  Report Type: 
  Country: None (occurrence: None)
  Receive Date: 20070914
  Receipt Date: 20070910
  Transmission Date: 20080115
  Serious: Yes (Death)
  Sender: FDA-Public Use
  Company Number: AU-MERCK-0709AUS00071

PATIENT
  Age: 81 Year
  Sex: Male

DRUGS (2)
  1. ZETIA [Suspect]
     Indication: METABOLIC DISORDER
     Route: 048
  2. WARFARIN [Concomitant]
     Route: 065

REACTIONS (1)
  - DEATH [None]
